FAERS Safety Report 7582209-1 (Version None)
Quarter: 2011Q2

REPORT INFORMATION
  Report Type: 
  Country: None (occurrence: None)
  Receive Date: 20110622
  Receipt Date: 20110609
  Transmission Date: 20111010
  Serious: Yes (Hospitalization)
  Sender: FDA-Public Use
  Company Number: 1000021634

PATIENT
  Age: 78 Year
  Sex: Female

DRUGS (7)
  1. CARDIRENE (ACETYLSALICYLATE) (SOLUTION-ACETYLSALICYLATE LYSINE) [Concomitant]
  2. CRESTOR [Concomitant]
  3. LEXOTAN (BROMAZEPAM) [Concomitant]
  4. LANSOX (LANSORPAZOLE) [Concomitant]
  5. MEMANTINE HYDROCHLORIDE [Suspect]
     Indication: DEMENTIA
     Dosage: 20 MG (20 MG, 1 IN 1 D), ORAL;
     Route: 048
     Dates: start: 20100115, end: 20110502
  6. ENALAPRIL MALEATE [Concomitant]
  7. REMERON [Concomitant]

REACTIONS (1)
  - EPILEPSY [None]
